FAERS Safety Report 9369858 (Version 1)
Quarter: 2013Q2

REPORT INFORMATION
  Report Type: Spontaneous
  Country: US (occurrence: US)
  Receive Date: 20130626
  Receipt Date: 20130626
  Transmission Date: 20140414
  Serious: Yes (Other)
  Sender: FDA-Public Use
  Company Number: US-ROCHE-1231401

PATIENT
  Age: 18 Year
  Sex: Female
  Weight: 52 kg

DRUGS (2)
  1. XOLAIR [Suspect]
     Indication: ASTHMA
     Dosage: 150 MG PER 1.2 ML INJECTION
     Route: 058
     Dates: start: 201304, end: 20130529
  2. ZYRTEC [Concomitant]

REACTIONS (6)
  - Anaphylactic reaction [Recovered/Resolved]
  - Pruritus [Unknown]
  - Nausea [Unknown]
  - Somnolence [Unknown]
  - Dizziness [Unknown]
  - Memory impairment [Unknown]
